FAERS Safety Report 5311328-5 (Version None)
Quarter: 2007Q2

REPORT INFORMATION
  Report Type: 
  Country: None (occurrence: None)
  Receive Date: 20070430
  Receipt Date: 20070418
  Transmission Date: 20071010
  Serious: Yes (Hospitalization)
  Sender: FDA-Public Use
  Company Number: PHRM2007FR01295

PATIENT
  Age: 63 Year
  Sex: Male

DRUGS (4)
  1. GLEEVEC [Suspect]
     Indication: CHRONIC MYELOID LEUKAEMIA
     Dosage: 600 MG/DAY
     Route: 048
     Dates: start: 20010101, end: 20030101
  2. GLEEVEC [Suspect]
     Dosage: 400 MG/DAY
     Route: 048
     Dates: start: 20030101, end: 20050101
  3. GLEEVEC [Suspect]
     Dosage: 100 MG/DAY
     Route: 048
     Dates: start: 20050101, end: 20070201
  4. HYZAAR [Suspect]
     Route: 048

REACTIONS (4)
  - DIPLOPIA [None]
  - DYSPHAGIA [None]
  - DYSPHONIA [None]
  - EATON-LAMBERT SYNDROME [None]
